FAERS Safety Report 9088908 (Version 3)
Quarter: 2013Q4

REPORT INFORMATION
  Report Type: Report from Study
  Country: JP (occurrence: JP)
  Receive Date: 20130201
  Receipt Date: 20131127
  Transmission Date: 20140711
  Serious: Yes (Other)
  Sender: FDA-Public Use
  Company Number: JP-VERTEX PHARMACEUTICALS INC.-2013-001389

PATIENT
  Age: 65 Year
  Sex: Female

DRUGS (16)
  1. VX-950 (TELAPREVIR) [Suspect]
     Indication: CHRONIC HEPATITIS C
     Dosage: 1500 MG, QD
     Route: 048
     Dates: start: 20120406, end: 20120524
  2. VX-950 (TELAPREVIR) [Suspect]
     Dosage: 750 MG, QD
     Route: 048
     Dates: start: 20120525, end: 20120531
  3. RIBAVIRIN [Suspect]
     Indication: CHRONIC HEPATITIS C
     Dosage: 600 MG, QD
     Route: 048
     Dates: start: 20120406, end: 20120504
  4. RIBAVIRIN [Suspect]
     Dosage: 400 MG, QD
     Route: 048
     Dates: start: 20120505, end: 20120524
  5. RIBAVIRIN [Suspect]
     Dosage: 200 MG, QD
     Route: 048
     Dates: start: 20120525, end: 20120531
  6. RIBAVIRIN [Suspect]
     Dosage: 400 MG, QD
     Route: 048
     Dates: start: 20120615, end: 20120621
  7. RIBAVIRIN [Suspect]
     Dosage: 600 MG, QD
     Route: 048
     Dates: start: 20120622, end: 20120914
  8. PEGINTRON [Suspect]
     Indication: CHRONIC HEPATITIS C
     Dosage: 1.5 ?G/KG, QW
     Route: 058
     Dates: start: 20120406, end: 20120406
  9. PEGINTRON [Suspect]
     Dosage: 0.75 ?G/KG, QW
     Route: 058
     Dates: start: 20120413, end: 20120914
  10. URSO [Concomitant]
     Dosage: 600 MG, QD
     Route: 048
     Dates: end: 20120615
  11. ZETIA [Concomitant]
     Dosage: 10 MG, QD
     Route: 048
  12. EPADEL [Concomitant]
     Dosage: 1800 MG, QD
     Route: 048
  13. ARTIST [Concomitant]
     Dosage: 10 MG, QD
     Route: 048
  14. BAYASPIRIN [Concomitant]
     Dosage: 100 MG, QD
     Route: 048
  15. COVERSYL [Concomitant]
     Dosage: 4 MG, QD
     Route: 048
  16. NEXIUM [Concomitant]
     Dosage: 10 MG, QD
     Route: 048
     Dates: start: 20120419

REACTIONS (3)
  - Haemoglobin decreased [Not Recovered/Not Resolved]
  - White blood cell count decreased [Recovered/Resolved]
  - Neutrophil count decreased [Recovered/Resolved]
